FAERS Safety Report 4624426-6 (Version None)
Quarter: 2005Q1

REPORT INFORMATION
  Report Type: 
  Country: None (occurrence: None)
  Receive Date: 20050330
  Receipt Date: 20050330
  Transmission Date: 20050727
  Serious: Yes (Other)
  Sender: FDA-Public Use
  Company Number: None

PATIENT
  Age: 47 Year
  Sex: Female

DRUGS (6)
  1. BREVITAL SODIUM INJ [Suspect]
     Indication: ANAESTHESIA
     Dosage: 100 MG X 1 INTRAVENOUS
     Route: 042
     Dates: start: 20050223, end: 20050223
  2. SUCCINYLCHOLINE CHLORIDE INJ [Suspect]
     Dosage: 70 MG X 1 INTRAVENOUS
     Route: 042
  3. PAXIL [Concomitant]
  4. IBUPROFEN [Concomitant]
  5. MULTI-VITAMIN [Concomitant]
  6. AMBIEN [Concomitant]

REACTIONS (3)
  - RASH GENERALISED [None]
  - RASH PRURITIC [None]
  - REACTION TO FOOD ADDITIVE [None]
